FAERS Safety Report 6955499-3 (Version None)
Quarter: 2010Q3

REPORT INFORMATION
  Report Type: 
  Country: None (occurrence: None)
  Receive Date: 20100830
  Receipt Date: 20100824
  Transmission Date: 20110219
  Serious: Yes (Hospitalization)
  Sender: FDA-Public Use
  Company Number: FR-BRISTOL-MYERS SQUIBB COMPANY-15255045

PATIENT
  Age: 80 Year
  Sex: Male

DRUGS (7)
  1. COUMADIN [Suspect]
     Route: 048
     Dates: start: 20081201, end: 20090325
  2. DIGOXIN [Concomitant]
     Dates: start: 20090101
  3. PROSCAR [Concomitant]
  4. PRAVASTATIN [Concomitant]
  5. DOLIPRANE [Concomitant]
  6. TRIATEC [Concomitant]
     Dates: start: 20090301
  7. ALFUZOSIN HCL [Concomitant]

REACTIONS (2)
  - INTERNATIONAL NORMALISED RATIO INCREASED [None]
  - LUNG DISORDER [None]
